FAERS Safety Report 4340353-6 (Version None)
Quarter: 2004Q2

REPORT INFORMATION
  Report Type: 
  Country: None (occurrence: None)
  Receive Date: 20040412
  Receipt Date: 20040326
  Transmission Date: 20050107
  Serious: Yes (Hospitalization)
  Sender: FDA-Public Use
  Company Number: DSA_24162_2004

PATIENT
  Age: 33 Year
  Sex: Female

DRUGS (3)
  1. LORAZEPAM [Suspect]
     Dates: start: 20040324, end: 20040324
  2. CARBAMAZEPINE [Suspect]
     Dates: start: 20040324, end: 20040324
  3. REMERGIL [Suspect]
     Dates: start: 20040324, end: 20040324

REACTIONS (3)
  - INTENTIONAL OVERDOSE [None]
  - RESPIRATORY DEPRESSION [None]
  - SOMNOLENCE [None]
